FAERS Safety Report 13119623 (Version 1)
Quarter: 2017Q1

REPORT INFORMATION
  Report Type: Spontaneous
  Country: DE (occurrence: DE)
  Receive Date: 20170117
  Receipt Date: 20170117
  Transmission Date: 20170428
  Serious: Yes (Death, Hospitalization, Other)
  Sender: FDA-Public Use
  Company Number: DE-AMGEN-DEUSP2017004310

PATIENT
  Age: 73 Year
  Sex: Male

DRUGS (14)
  1. PIXANTRONE [Concomitant]
     Active Substance: PIXANTRONE
     Indication: LEUKOPENIA
     Dosage: UNK
     Dates: start: 201506, end: 201507
  2. CYCLOPHOSPHAMIDE. [Concomitant]
     Active Substance: CYCLOPHOSPHAMIDE
     Indication: LEUKOPENIA
     Dosage: UNK, Q2WK (14 DAYS CYCLE)
     Dates: start: 2015
  3. DOXORUBICIN [Concomitant]
     Active Substance: DOXORUBICIN
     Indication: B-CELL LYMPHOMA
  4. VINCRISTINE [Concomitant]
     Active Substance: VINCRISTINE
     Indication: LEUKOPENIA
     Dosage: UNK, Q2WK (14 DAYS CYCLE)
     Dates: start: 2015
  5. BENDAMUSTINE [Concomitant]
     Active Substance: BENDAMUSTINE
     Indication: PERIPHERAL T-CELL LYMPHOMA UNSPECIFIED
     Dosage: UNK
     Dates: start: 2015
  6. BENDAMUSTINE [Concomitant]
     Active Substance: BENDAMUSTINE
     Indication: LEUKOPENIA
  7. ETOPOSIDE. [Concomitant]
     Active Substance: ETOPOSIDE
     Dosage: UNK
     Dates: start: 201506, end: 201507
  8. DOXORUBICIN [Concomitant]
     Active Substance: DOXORUBICIN
     Indication: PERIPHERAL T-CELL LYMPHOMA UNSPECIFIED
     Dosage: UNK, Q2WK (14 DAYS CYCLE)
     Dates: start: 2015
  9. PREDNISOLONE. [Concomitant]
     Active Substance: PREDNISOLONE
     Indication: LEUKOPENIA
     Dosage: UNK, Q2WK (14 DAYS CYCLE)
     Dates: start: 2015
  10. ONDANSETRON [Concomitant]
     Active Substance: ONDANSETRON
     Dosage: 8 MG, PER SESSION
     Dates: start: 201409
  11. NEUPOGEN [Suspect]
     Active Substance: FILGRASTIM
     Indication: LEUKOPENIA
     Dosage: 48 MILLION UNIT, QD (FOR 5 DAYS)
     Route: 058
     Dates: start: 2015
  12. BENDAMUSTINE [Concomitant]
     Active Substance: BENDAMUSTINE
     Indication: B-CELL LYMPHOMA
     Dosage: UNK
     Dates: start: 201506, end: 201507
  13. ETOPOSIDE. [Concomitant]
     Active Substance: ETOPOSIDE
     Indication: LEUKOPENIA
     Dosage: UNK, Q2WK (14 DAYS CYCLE)
     Dates: start: 2015
  14. DOXORUBICIN [Concomitant]
     Active Substance: DOXORUBICIN
     Indication: LEUKOPENIA
     Dosage: 20 MG/M2, Q3WK
     Dates: start: 201409

REACTIONS (5)
  - B-cell lymphoma [Fatal]
  - Drug eruption [Recovered/Resolved]
  - Peripheral T-cell lymphoma unspecified [Fatal]
  - Pyrexia [Unknown]
  - Pneumonia [Fatal]

NARRATIVE: CASE EVENT DATE: 2015
